FAERS Safety Report 7046801-5 (Version None)
Quarter: 2010Q4

REPORT INFORMATION
  Report Type: 
  Country: None (occurrence: None)
  Receive Date: 20101015
  Receipt Date: 20101008
  Transmission Date: 20110411
  Serious: Yes (Hospitalization)
  Sender: FDA-Public Use
  Company Number: DE-CEPHALON-2010005384

PATIENT
  Age: 32 Year
  Sex: Female

DRUGS (1)
  1. ACTIQ [Suspect]
     Indication: MIGRAINE
     Route: 002

REACTIONS (2)
  - DETOXIFICATION [None]
  - DRUG PRESCRIBING ERROR [None]
